FAERS Safety Report 13454761 (Version 1)
Quarter: 2017Q2

REPORT INFORMATION
  Report Type: Report from Study
  Country: FR (occurrence: FR)
  Receive Date: 20170418
  Receipt Date: 20170418
  Transmission Date: 20170830
  Serious: Yes (Other)
  Sender: FDA-Public Use
  Company Number: FR-JNJFOC-20170413269

PATIENT
  Sex: Male

DRUGS (5)
  1. DACTOLISIB [Suspect]
     Active Substance: DACTOLISIB
     Indication: HORMONE-REFRACTORY PROSTATE CANCER
     Route: 048
  2. PREDNISONE. [Concomitant]
     Active Substance: PREDNISONE
     Indication: HORMONE-REFRACTORY PROSTATE CANCER
     Route: 048
  3. BUPARLISIB [Suspect]
     Active Substance: BUPARLISIB HYDROCHLORIDE
     Indication: HORMONE-REFRACTORY PROSTATE CANCER
     Dosage: 5 PATIENTS
     Route: 048
  4. ABIRATERONE ACETATE [Suspect]
     Active Substance: ABIRATERONE ACETATE
     Indication: HORMONE-REFRACTORY PROSTATE CANCER
     Route: 048
  5. BUPARLISIB [Suspect]
     Active Substance: BUPARLISIB HYDROCHLORIDE
     Indication: HORMONE-REFRACTORY PROSTATE CANCER
     Dosage: 20 PATIENTS
     Route: 048

REACTIONS (55)
  - Hypophosphataemia [Unknown]
  - Asthenia [Unknown]
  - Pyrexia [Unknown]
  - Pneumonia [Unknown]
  - Weight decreased [Unknown]
  - Anaemia [Unknown]
  - Dizziness [Unknown]
  - Vertigo [Unknown]
  - Presyncope [Unknown]
  - Chills [Unknown]
  - Musculoskeletal pain [Unknown]
  - Lymphopenia [Unknown]
  - Spinal cord compression [Unknown]
  - Epistaxis [Unknown]
  - Hyperhidrosis [Unknown]
  - Nausea [Unknown]
  - Back pain [Unknown]
  - Fatigue [Unknown]
  - Myalgia [Unknown]
  - Depression [Unknown]
  - Constipation [Unknown]
  - Renal failure [Unknown]
  - Vomiting [Unknown]
  - Hypokalaemia [Unknown]
  - Neck pain [Unknown]
  - Irritability [Unknown]
  - Pruritus [Unknown]
  - Hot flush [Unknown]
  - Thrombocytopenia [Unknown]
  - Rectal haemorrhage [Unknown]
  - Decreased appetite [Unknown]
  - Pain in extremity [Unknown]
  - Lacrimation increased [Unknown]
  - Gastrooesophageal reflux disease [Unknown]
  - Dry mouth [Unknown]
  - Dysgeusia [Unknown]
  - Arthralgia [Unknown]
  - Aspartate aminotransferase increased [Unknown]
  - Stomatitis [Unknown]
  - Blood alkaline phosphatase increased [Unknown]
  - Bone pain [Unknown]
  - Diarrhoea [Unknown]
  - Atrial fibrillation [Unknown]
  - Pneumonitis [Unknown]
  - Hiccups [Unknown]
  - Tinnitus [Unknown]
  - Somnolence [Unknown]
  - Headache [Unknown]
  - Abdominal pain [Unknown]
  - Insomnia [Unknown]
  - Dyspepsia [Unknown]
  - Hyperglycaemia [Unknown]
  - Rash [Unknown]
  - Extrapyramidal disorder [Unknown]
  - Cough [Unknown]
